FAERS Safety Report 11124891 (Version 2)
Quarter: 2015Q2

REPORT INFORMATION
  Report Type: Report from Study
  Country: US (occurrence: US)
  Receive Date: 20150520
  Receipt Date: 20150529
  Transmission Date: 20150821
  Serious: Yes (Life-Threatening, Other)
  Sender: FDA-Public Use
  Company Number: US-BAYER-2015-200374

PATIENT
  Age: 66 Year
  Sex: Male

DRUGS (1)
  1. STIVARGA [Suspect]
     Active Substance: REGORAFENIB
     Indication: NEOPLASM MALIGNANT
     Dosage: 4 TABLETS DAILY WITH LOW FAT MEAL FOR 21 DAYS THEN 7 DAYS OFF
     Route: 048
     Dates: start: 20150501, end: 20150507

REACTIONS (11)
  - Weight decreased [None]
  - Asthenia [None]
  - Skin exfoliation [None]
  - Headache [None]
  - Axillary pain [Not Recovered/Not Resolved]
  - Blood pressure increased [None]
  - Gait disturbance [None]
  - Blood pressure increased [None]
  - Fatigue [None]
  - Decreased appetite [None]
  - Dysphonia [None]

NARRATIVE: CASE EVENT DATE: 20150503
